FAERS Safety Report 9910579 (Version 3)
Quarter: 2015Q3

REPORT INFORMATION
  Report Type: Spontaneous
  Country: US (occurrence: US)
  Receive Date: 20140219
  Receipt Date: 20150811
  Transmission Date: 20151125
  Serious: No
  Sender: FDA-Public Use
  Company Number: US-GILEAD-2012-0051504

PATIENT
  Age: 36 Year
  Sex: Male

DRUGS (1)
  1. LETAIRIS [Suspect]
     Active Substance: AMBRISENTAN
     Indication: PULMONARY HYPERTENSION
     Dosage: 10 MG, UNK
     Route: 048
     Dates: start: 20120206

REACTIONS (4)
  - Pain in extremity [Unknown]
  - Fluid retention [Unknown]
  - Erythema [Unknown]
  - Hot flush [Unknown]

NARRATIVE: CASE EVENT DATE: 20120206
